FAERS Safety Report 5680680-3 (Version None)
Quarter: 2008Q1

REPORT INFORMATION
  Report Type: 
  Country: None (occurrence: None)
  Receive Date: 20080326
  Receipt Date: 20080131
  Transmission Date: 20080703
  Serious: No
  Sender: FDA-Public Use
  Company Number: US-BAUSCH-2008BL000422

PATIENT
  Age: 46 Year
  Sex: Female

DRUGS (5)
  1. LOTEMAX [Suspect]
     Indication: EYE INFLAMMATION
     Route: 047
     Dates: start: 20080130, end: 20080130
  2. LOTEMAX [Suspect]
     Indication: KERATOCONJUNCTIVITIS SICCA
     Route: 047
     Dates: start: 20080130, end: 20080130
  3. SYSTANE [Concomitant]
     Indication: KERATOCONJUNCTIVITIS SICCA
     Route: 047
     Dates: start: 20080101
  4. GENTEAL [Concomitant]
     Indication: KERATOCONJUNCTIVITIS SICCA
     Route: 047
     Dates: start: 20080101
  5. YAZ [Concomitant]
     Indication: CONTRACEPTION
     Route: 048
     Dates: start: 20080123

REACTIONS (6)
  - EPISTAXIS [None]
  - EYE IRRITATION [None]
  - EYE PRURITUS [None]
  - RASH ERYTHEMATOUS [None]
  - SKIN BURNING SENSATION [None]
  - SKIN INFLAMMATION [None]
